FAERS Safety Report 19864554 (Version 1)
Quarter: 2021Q3

REPORT INFORMATION
  Report Type: Report from Study
  Country: None (occurrence: US)
  Receive Date: 20210922
  Receipt Date: 20210922
  Transmission Date: 20211014
  Serious: Yes (Other)
  Sender: FDA-Public Use
  Company Number: US-ABBVIE-21K-163-4082011-00

PATIENT
  Age: 78 Year
  Sex: Female

DRUGS (4)
  1. PFIZER?BIONTECH COVID?19 VACCINE [Concomitant]
     Active Substance: TOZINAMERAN
     Indication: COVID-19 IMMUNISATION
     Dosage: DOSE 1
     Route: 030
     Dates: start: 202103, end: 202103
  2. IMBRUVICA [Suspect]
     Active Substance: IBRUTINIB
     Dosage: STOPPED FOR 3 WEEKS
     Route: 048
  3. IMBRUVICA [Suspect]
     Active Substance: IBRUTINIB
     Indication: CHRONIC LYMPHOCYTIC LEUKAEMIA
     Route: 048
  4. PFIZER?BIONTECH COVID?19 VACCINE [Concomitant]
     Active Substance: TOZINAMERAN
     Dosage: DOSE 2
     Route: 030
     Dates: start: 202104, end: 202104

REACTIONS (7)
  - Diverticulitis [Unknown]
  - Petechiae [Unknown]
  - Blood pressure increased [Unknown]
  - Thyroidectomy [Unknown]
  - Haemorrhage [Recovered/Resolved]
  - Gastric disorder [Unknown]
  - Malaise [Unknown]

NARRATIVE: CASE EVENT DATE: 202011
